FAERS Safety Report 5834927-0 (Version None)
Quarter: 2008Q3

REPORT INFORMATION
  Report Type: 
  Country: None (occurrence: None)
  Receive Date: 20080806
  Receipt Date: 20080728
  Transmission Date: 20090109
  Serious: Yes (Life-Threatening, Hospitalization, Disabling, Other)
  Sender: FDA-Public Use
  Company Number: JP-WYE-H01392607

PATIENT
  Sex: Female
  Weight: 52 kg

DRUGS (20)
  1. MYLOTARG [Suspect]
     Indication: ACUTE MYELOID LEUKAEMIA RECURRENT
     Route: 041
     Dates: start: 20070612, end: 20070612
  2. MYLOTARG [Suspect]
     Route: 041
     Dates: start: 20070629, end: 20070629
  3. NOVANTRONE [Suspect]
     Indication: ACUTE MYELOID LEUKAEMIA RECURRENT
     Route: 041
     Dates: start: 20070713, end: 20070715
  4. COTRIM [Concomitant]
     Indication: PROPHYLAXIS
     Dosage: 1 DOSE FORM PER DAY
     Route: 048
  5. MINOCYCLINE HCL [Concomitant]
     Route: 048
     Dates: start: 20070601, end: 20070614
  6. DIFLUCAN [Concomitant]
     Indication: PROPHYLAXIS
     Route: 048
     Dates: end: 20070614
  7. MEROPEN [Concomitant]
     Route: 041
     Dates: start: 20070612, end: 20070723
  8. FUNGUARD [Concomitant]
     Indication: PROPHYLAXIS
     Route: 041
     Dates: start: 20070614, end: 20070620
  9. AMIKACIN SULFATE [Concomitant]
     Route: 041
     Dates: start: 20070614, end: 20070615
  10. AMIKACIN SULFATE [Concomitant]
     Route: 041
     Dates: start: 20070706, end: 20070722
  11. DIGOSIN [Concomitant]
     Route: 048
     Dates: start: 20070616, end: 20070709
  12. TARGOCID [Concomitant]
     Route: 041
     Dates: start: 20070616, end: 20070624
  13. TARGOCID [Concomitant]
     Route: 041
     Dates: start: 20070725
  14. DOPAMINE HYDROCHLORIDE [Concomitant]
     Dosage: DOSE NOT PROVIDED
     Route: 041
     Dates: start: 20070616, end: 20070620
  15. PRODIF [Concomitant]
     Indication: PROPHYLAXIS
     Route: 042
     Dates: start: 20070621, end: 20070726
  16. FAMOTIDINE [Concomitant]
     Route: 048
     Dates: start: 20070622
  17. LASIX [Concomitant]
     Route: 042
     Dates: start: 20070707
  18. SEDIEL [Concomitant]
     Route: 048
     Dates: start: 20070706
  19. TOLEDOMIN [Concomitant]
     Route: 048
     Dates: start: 20070709
  20. CYTARABINE [Suspect]
     Indication: ACUTE MYELOID LEUKAEMIA RECURRENT
     Route: 041
     Dates: start: 20070713, end: 20070717

REACTIONS (8)
  - ANAEMIA [None]
  - CARDIAC FAILURE CONGESTIVE [None]
  - DEPRESSION [None]
  - DISSEMINATED INTRAVASCULAR COAGULATION [None]
  - HERPES ZOSTER [None]
  - NEUTROPHIL COUNT DECREASED [None]
  - POST HERPETIC NEURALGIA [None]
  - RETINAL HAEMORRHAGE [None]
